FAERS Safety Report 17641526 (Version 1)
Quarter: 2020Q2

REPORT INFORMATION
  Report Type: Spontaneous
  Country: DK (occurrence: DK)
  Receive Date: 20200407
  Receipt Date: 20200407
  Transmission Date: 20200713
  Serious: Yes (Hospitalization, Other)
  Sender: FDA-Public Use
  Company Number: DK-JAZZ-2020-DK-004685

PATIENT
  Age: 8 Year
  Sex: Female

DRUGS (4)
  1. PURINETHOL [Suspect]
     Active Substance: MERCAPTOPURINE
     Indication: ACUTE LYMPHOCYTIC LEUKAEMIA
     Dosage: STYRKE: 50 MILLIGRAM
     Route: 048
     Dates: start: 20150505, end: 20151111
  2. ASPARAGINASE [Suspect]
     Active Substance: ASPARAGINASE
     Indication: ACUTE LYMPHOCYTIC LEUKAEMIA
     Dosage: STYRKE: 10000 IE
     Route: 065
     Dates: start: 20150505, end: 20151111
  3. ONCOVIN [Suspect]
     Active Substance: VINCRISTINE SULFATE
     Indication: ACUTE LYMPHOCYTIC LEUKAEMIA
     Dosage: STYRKE: 1 MG/ML
     Dates: start: 20150505, end: 20151111
  4. METHOTREXATE. [Suspect]
     Active Substance: METHOTREXATE
     Indication: ACUTE LYMPHOCYTIC LEUKAEMIA
     Dosage: UNKNOWN DOSE
     Route: 065
     Dates: start: 20150505, end: 20151111

REACTIONS (8)
  - Ascites [Recovered/Resolved]
  - Systemic inflammatory response syndrome [Recovered/Resolved]
  - Dyspnoea [Recovered/Resolved]
  - Pancreatitis [Recovered/Resolved]
  - Vomiting [Recovered/Resolved]
  - Abdominal distension [Recovered/Resolved]
  - Musculoskeletal chest pain [Recovered/Resolved]
  - Abdominal pain upper [Recovered/Resolved]

NARRATIVE: CASE EVENT DATE: 20151123
